FAERS Safety Report 6296228-9 (Version None)
Quarter: 2009Q3

REPORT INFORMATION
  Report Type: 
  Country: None (occurrence: None)
  Receive Date: 20090804
  Receipt Date: 20090723
  Transmission Date: 20100115
  Serious: Yes (Life-Threatening, Other)
  Sender: FDA-Public Use
  Company Number: JP-PFIZER INC-2009241808

PATIENT
  Age: 81 Year

DRUGS (6)
  1. DIFLUCAN [Suspect]
     Dosage: 100 MG, 1X/DAY
     Route: 042
     Dates: start: 20090625, end: 20090709
  2. MEROPEN [Suspect]
     Indication: PNEUMONIA
     Dosage: 0.5 G, 2X/DAY
     Route: 042
     Dates: start: 20090625, end: 20090709
  3. GASTROPYLORE [Concomitant]
     Dosage: UNK
     Route: 048
  4. THYRADIN S [Concomitant]
     Dosage: UNK
     Route: 048
  5. TAMSULOSIN HYDROCHLORIDE [Concomitant]
     Dosage: UNK
     Route: 048
  6. AMOBAN [Concomitant]
     Dosage: UNK
     Route: 048

REACTIONS (2)
  - HEPATIC FUNCTION ABNORMAL [None]
  - VENTRICULAR TACHYCARDIA [None]
